FAERS Safety Report 9915672 (Version 1)
Quarter: 2014Q1

REPORT INFORMATION
  Report Type: Spontaneous
  Country: IT (occurrence: None)
  Receive Date: 20140218
  Receipt Date: 20140218
  Transmission Date: 20141002
  Serious: Yes (Other)
  Sender: FDA-Public Use
  Company Number: 2014HINLIT0121

PATIENT
  Age: 41 Year
  Sex: Male

DRUGS (3)
  1. EMTRICITABINE + TENOFOVIR [Suspect]
     Indication: ANTIRETROVIRAL THERAPY
     Dates: start: 201109
  2. ATAZANAVIR / RITONAVIR [Suspect]
     Indication: ANTIRETROVIRAL THERAPY
  3. TELAPREVIR (TELAPREVIR) [Suspect]
     Indication: HEPATITIS C
     Dates: start: 201304, end: 20130704

REACTIONS (7)
  - Renal impairment [None]
  - Drug interaction [None]
  - Weight decreased [None]
  - Anaemia [None]
  - Hepatitis infectious [None]
  - Condition aggravated [None]
  - Haemoglobin decreased [None]
